FAERS Safety Report 4945173-7 (Version None)
Quarter: 2006Q1

REPORT INFORMATION
  Report Type: 
  Country: None (occurrence: None)
  Receive Date: 20060117
  Receipt Date: 20050804
  Transmission Date: 20060701
  Serious: Yes (Hospitalization)
  Sender: FDA-Public Use
  Company Number: A03200502378

PATIENT
  Sex: Male
  Weight: 117.91 kg

DRUGS (5)
  1. PLAVIX [Suspect]
     Indication: ACUTE MYOCARDIAL INFARCTION
     Dosage: 75 MG QD - ORAL
     Route: 048
     Dates: start: 20050601, end: 20050620
  2. RAMIPRIL [Concomitant]
  3. VALSARTAN [Concomitant]
  4. METOPROLOL SUCCINATE [Concomitant]
  5. PRAVASTATIN SODIUM [Concomitant]

REACTIONS (1)
  - PAIN IN EXTREMITY [None]
